FAERS Safety Report 10246891 (Version 2)
Quarter: 2014Q2

REPORT INFORMATION
  Report Type: Spontaneous
  Country: US (occurrence: US)
  Receive Date: 20140619
  Receipt Date: 20140619
  Transmission Date: 20141212
  Serious: Yes (Hospitalization, Other)
  Sender: FDA-Public Use
  Company Number: US-PFIZER INC-2014041085

PATIENT
  Age: 66 Year
  Sex: Female
  Weight: 67.57 kg

DRUGS (2)
  1. REVATIO [Suspect]
     Indication: PULMONARY HYPERTENSION
     Dosage: 20 MG, 3X/DAY
     Dates: start: 20110428
  2. REVATIO [Suspect]
     Dosage: 60 MG, 3X/DAY

REACTIONS (1)
  - Staphylococcal infection [Unknown]
